FAERS Safety Report 23264042 (Version 3)
Quarter: 2023Q4

REPORT INFORMATION
  Report Type: Report from Study
  Country: EG (occurrence: EG)
  Receive Date: 20231205
  Receipt Date: 20231219
  Transmission Date: 20240109
  Serious: Yes (Other)
  Sender: FDA-Public Use
  Company Number: EG-BoehringerIngelheim-2023-BI-276121

PATIENT
  Age: 34 Year
  Sex: Male

DRUGS (5)
  1. OFEV [Suspect]
     Active Substance: NINTEDANIB
     Indication: Pulmonary fibrosis
     Route: 048
     Dates: start: 20230806
  2. IMURAN [Concomitant]
     Active Substance: AZATHIOPRINE
     Indication: Immune system disorder
     Route: 048
     Dates: start: 202305
  3. solupred 10 mg [Concomitant]
     Indication: Dyspnoea
     Route: 048
     Dates: start: 202305
  4. cal-mag [Concomitant]
     Indication: Supplementation therapy
     Route: 048
     Dates: start: 20230902
  5. sugarlo plus 850/ 50 mg [Concomitant]
     Indication: Diabetes mellitus
     Route: 048
     Dates: start: 20231002

REACTIONS (4)
  - Drug ineffective [Not Recovered/Not Resolved]
  - Dyspnoea [Not Recovered/Not Resolved]
  - Steroid diabetes [Not Recovered/Not Resolved]
  - Oxygen saturation decreased [Not Recovered/Not Resolved]

NARRATIVE: CASE EVENT DATE: 20231001
